FAERS Safety Report 14137697 (Version 2)
Quarter: 2018Q2

REPORT INFORMATION
  Report Type: Spontaneous
  Country: US (occurrence: US)
  Receive Date: 20171027
  Receipt Date: 20180511
  Transmission Date: 20180711
  Serious: Yes (Hospitalization)
  Sender: FDA-Public Use
  Company Number: US-LUNDBECK-DKLU2039015

PATIENT
  Age: 86 Year
  Sex: Male

DRUGS (1)
  1. NORTHERA [Suspect]
     Active Substance: DROXIDOPA
     Indication: ORTHOSTATIC HYPOTENSION
     Dosage: SCHEDULE B COMPLETED
     Route: 048
     Dates: start: 20170724

REACTIONS (3)
  - Constipation [Recovered/Resolved]
  - Dehydration [Unknown]
  - Decreased activity [Unknown]

NARRATIVE: CASE EVENT DATE: 201710
